FAERS Safety Report 6492542-2 (Version None)
Quarter: 2009Q4

REPORT INFORMATION
  Report Type: 
  Country: None (occurrence: None)
  Receive Date: 20091208
  Receipt Date: 20091120
  Transmission Date: 20100525
  Serious: Yes (Hospitalization)
  Sender: FDA-Public Use
  Company Number: DSA_42093_2009

PATIENT
  Age: 89 Year
  Sex: Female

DRUGS (8)
  1. DILTIAZEM [Suspect]
     Indication: CORONARY ARTERY DISEASE
     Dosage: (240 MG QD ORAL)
     Route: 048
     Dates: end: 20080712
  2. SOTALOL HYDROCHLORIDE [Suspect]
     Indication: ARRHYTHMIA PROPHYLAXIS
     Dosage: (80 MG BID ORAL)
     Route: 048
     Dates: end: 20080712
  3. METOPROLOL TARTRATE [Suspect]
     Indication: CARDIAC FAILURE
     Dosage: (95 MG QD ORAL), (DF ORAL)
     Route: 048
     Dates: end: 20080712
  4. METOPROLOL TARTRATE [Suspect]
     Indication: CARDIAC FAILURE
     Dosage: (95 MG QD ORAL), (DF ORAL)
     Route: 048
     Dates: start: 20080715
  5. DIGITOXIN INJ [Suspect]
     Indication: CARDIAC FAILURE
     Dosage: (0.07 MG QD ORAL)
     Route: 048
     Dates: end: 20080712
  6. ALLOPURINOL [Concomitant]
  7. BRONCHORETARD [Concomitant]
  8. METFORMIN [Concomitant]

REACTIONS (11)
  - ACTIVATED PARTIAL THROMBOPLASTIN TIME PROLONGED [None]
  - ASTHENIA [None]
  - BLOOD SODIUM INCREASED [None]
  - BRADYCARDIA [None]
  - DEHYDRATION [None]
  - GENERAL PHYSICAL HEALTH DETERIORATION [None]
  - HAEMATOCRIT DECREASED [None]
  - HAEMOGLOBIN DECREASED [None]
  - RENAL FAILURE [None]
  - SUPRAVENTRICULAR EXTRASYSTOLES [None]
  - VENTRICULAR EXTRASYSTOLES [None]
